FAERS Safety Report 20906497 (Version 2)
Quarter: 2022Q3

REPORT INFORMATION
  Report Type: Other
  Country: GR (occurrence: GR)
  Receive Date: 20220602
  Receipt Date: 20220708
  Transmission Date: 20221026
  Serious: Yes (Hospitalization)
  Sender: FDA-Public Use
  Company Number: GR-PFIZER INC-202200684450

PATIENT
  Age: 63 Year
  Sex: Female

DRUGS (1)
  1. BEVACIZUMAB [Suspect]
     Active Substance: BEVACIZUMAB
     Indication: Product used for unknown indication
     Dosage: 3 INTRAVITREAL ANTI-VASCULAR ENDOTHELIAL GROWTH FACTOR INFUSIONS ON THE LEFT EYE
     Route: 050

REACTIONS (4)
  - Vitreoretinal traction syndrome [Recovered/Resolved]
  - Macular detachment [Unknown]
  - Condition aggravated [Unknown]
  - Off label use [Unknown]
